FAERS Safety Report 10192307 (Version 3)
Quarter: 2014Q3

REPORT INFORMATION
  Report Type: Spontaneous
  Country: US (occurrence: US)
  Receive Date: 20140523
  Receipt Date: 20140923
  Transmission Date: 20150326
  Serious: Yes (Hospitalization, Other)
  Sender: FDA-Public Use
  Company Number: US-AMGEN-USASP2014036311

PATIENT
  Age: 48 Year
  Sex: Female

DRUGS (1)
  1. NPLATE [Suspect]
     Active Substance: ROMIPLOSTIM
     Indication: IMMUNE THROMBOCYTOPENIC PURPURA
     Dosage: UNK UNK, QWK
     Route: 065
     Dates: start: 201405

REACTIONS (19)
  - Limb injury [Unknown]
  - Substance-induced psychotic disorder [Unknown]
  - Neck pain [Unknown]
  - Pruritus [Unknown]
  - Hypoaesthesia [Unknown]
  - Food allergy [Unknown]
  - Headache [Unknown]
  - Choking [Unknown]
  - Urticaria [Unknown]
  - Paraesthesia [Unknown]
  - Platelet count abnormal [Unknown]
  - Platelet count decreased [Unknown]
  - Drug hypersensitivity [Unknown]
  - Sensation of foreign body [Unknown]
  - Pharyngeal oedema [Unknown]
  - Dry throat [Unknown]
  - Back pain [Unknown]
  - Dysphagia [Unknown]
  - Musculoskeletal pain [Unknown]

NARRATIVE: CASE EVENT DATE: 20140510
